FAERS Safety Report 5830342-4 (Version None)
Quarter: 2008Q3

REPORT INFORMATION
  Report Type: 
  Country: None (occurrence: None)
  Receive Date: 20080801
  Receipt Date: 20080723
  Transmission Date: 20090109
  Serious: Yes (Hospitalization)
  Sender: FDA-Public Use
  Company Number: BR-ABBOTT-08P-020-0455759-00

PATIENT
  Sex: Female
  Weight: 87 kg

DRUGS (5)
  1. HUMIRA [Suspect]
     Indication: RHEUMATOID ARTHRITIS
     Route: 058
     Dates: start: 20080520
  2. CAPTOPRIL [Concomitant]
     Indication: HYPERTENSION
     Route: 048
     Dates: start: 20070101
  3. CANDESARTAN CILEXETIL [Concomitant]
     Indication: HYPERTENSION
     Route: 048
     Dates: start: 20070101
  4. FLUOXETINE [Concomitant]
     Indication: DEPRESSION
     Route: 048
     Dates: start: 20020101
  5. NORTRIPTYLINE HCL [Concomitant]
     Indication: DEPRESSION
     Route: 048
     Dates: start: 20070101

REACTIONS (8)
  - ARTHRALGIA [None]
  - ARTHROPATHY [None]
  - ASTHENIA [None]
  - CHONDROPATHY [None]
  - DYSPNOEA [None]
  - HYPERTENSION [None]
  - INCISION SITE PAIN [None]
  - LOCALISED OEDEMA [None]
